FAERS Safety Report 7202814-1 (Version None)
Quarter: 2010Q4

REPORT INFORMATION
  Report Type: 
  Country: None (occurrence: None)
  Receive Date: 20101229
  Receipt Date: 20101223
  Transmission Date: 20110411
  Serious: Yes (Death, Hospitalization)
  Sender: FDA-Public Use
  Company Number: BR-AMGEN GMBH-KDC445319

PATIENT

DRUGS (2)
  1. DENOSUMAB [Suspect]
     Indication: METASTASES TO BONE
     Dosage: UNK UNK, Q4WK
     Dates: start: 20090817
  2. DOCETAXEL [Concomitant]
     Dosage: UNK UNK, QMO
     Route: 042
     Dates: start: 20090525, end: 20100913

REACTIONS (5)
  - DIARRHOEA [None]
  - DISEASE PROGRESSION [None]
  - METASTASES TO SPINE [None]
  - PARESIS [None]
  - PLEURAL EFFUSION [None]
